FAERS Safety Report 5355478-6 (Version None)
Quarter: 2007Q2

REPORT INFORMATION
  Report Type: 
  Country: None (occurrence: None)
  Receive Date: 20070530
  Receipt Date: 20061207
  Transmission Date: 20071010
  Serious: Yes (Hospitalization)
  Sender: FDA-Public Use
  Company Number: US200609001977

PATIENT
  Sex: Male
  Weight: 81.6 kg

DRUGS (5)
  1. ZYPREXA [Suspect]
     Indication: DEPRESSION
     Dates: start: 20060101, end: 20060401
  2. QUETIAPINE FUMARATE [Concomitant]
  3. RISPERIDONE [Concomitant]
  4. DEPAKOTE [Concomitant]
  5. METFORMIN (METFORMIN) [Concomitant]

REACTIONS (1)
  - DIABETES MELLITUS [None]
